FAERS Safety Report 11628830 (Version 1)
Quarter: 2015Q4

REPORT INFORMATION
  Report Type: Spontaneous
  Country: CH (occurrence: CH)
  Receive Date: 20151014
  Receipt Date: 20151014
  Transmission Date: 20160304
  Serious: Yes (Other)
  Sender: FDA-Public Use
  Company Number: CH-LPDUSPRD-20150783

PATIENT

DRUGS (1)
  1. VENOFER [Suspect]
     Active Substance: IRON SUCROSE
     Dosage: DOSE NOT PROVIDED
     Route: 065

REACTIONS (13)
  - Peripheral swelling [Unknown]
  - Headache [Unknown]
  - Myalgia [Unknown]
  - Muscle spasms [Unknown]
  - Nausea [Unknown]
  - White blood cell count increased [Unknown]
  - Gastrointestinal disorder [Unknown]
  - Urticaria [Unknown]
  - Fibromyalgia [Unknown]
  - Seizure [Unknown]
  - Arthralgia [Unknown]
  - Tooth injury [Unknown]
  - Swollen tongue [Unknown]
